FAERS Safety Report 8776723 (Version 3)
Quarter: 2012Q4

REPORT INFORMATION
  Report Type: 
  Country: DE (occurrence: DE)
  Receive Date: 20120906
  Receipt Date: 20120926
  Transmission Date: 20130627
  Serious: Yes (Other)
  Sender: FDA-Public Use
  Company Number: PHHY2012DE076802

PATIENT
  Age: 56 Year
  Sex: Male

DRUGS (2)
  1. ILARIS [Suspect]
     Indication: CRYOPYRIN ASSOCIATED PERIODIC SYNDROME
     Dosage: 150 mg, UNK
     Dates: start: 201112
  2. CORTISONE [Concomitant]
     Indication: CRYOPYRIN ASSOCIATED PERIODIC SYNDROME
     Dosage: UNK
     Route: 048
     Dates: start: 2002

REACTIONS (1)
  - Crohn^s disease [Unknown]
